FAERS Safety Report 24229851 (Version 2)
Quarter: 2024Q3

REPORT INFORMATION
  Report Type: Spontaneous
  Country: FR (occurrence: FR)
  Receive Date: 20240820
  Receipt Date: 20240911
  Transmission Date: 20241017
  Serious: Yes (Hospitalization, Other)
  Sender: MERCK
  Company Number: None

PATIENT
  Age: 64 Year
  Sex: Male
  Weight: 57 kg

DRUGS (4)
  1. DAPTOMYCIN [Suspect]
     Active Substance: DAPTOMYCIN
     Indication: Endocarditis
     Route: 042
     Dates: start: 20240717, end: 20240722
  2. AMIKACIN [Suspect]
     Active Substance: AMIKACIN
     Indication: Device related infection
     Route: 042
     Dates: start: 20240717, end: 20240717
  3. VANCOMYCIN [Suspect]
     Active Substance: VANCOMYCIN
     Indication: Device related infection
     Route: 042
     Dates: start: 20240702, end: 20240715
  4. PIPERACILLIN SODIUM\TAZOBACTAM SODIUM [Suspect]
     Active Substance: PIPERACILLIN SODIUM\TAZOBACTAM SODIUM
     Indication: Cholecystitis acute
     Route: 042
     Dates: start: 20240628, end: 20240717

REACTIONS (5)
  - Leukopenia [Recovered/Resolved]
  - Anaemia [Not Recovered/Not Resolved]
  - Thrombocytopenia [Recovered/Resolved]
  - Lymphopenia [Not Recovered/Not Resolved]
  - Neutropenia [Recovered/Resolved]

NARRATIVE: CASE EVENT DATE: 20240715
